FAERS Safety Report 17203563 (Version 1)
Quarter: 2019Q4

REPORT INFORMATION
  Report Type: Spontaneous
  Country: US (occurrence: US)
  Receive Date: 20191226
  Receipt Date: 20191226
  Transmission Date: 20200122
  Serious: No
  Sender: FDA-Public Use
  Company Number: US-CATALYST PHARMACEUTICALS, INC-2019CAT00398

PATIENT
  Sex: Female

DRUGS (9)
  1. MESTINON EXTENDED RELEASE [Concomitant]
     Dosage: 60 MG, 1X/DAY (LAST DOSE OF THE DAY)
  2. ESTRADIOL. [Concomitant]
     Active Substance: ESTRADIOL
  3. TRAZODONE [Concomitant]
     Active Substance: TRAZODONE HYDROCHLORIDE
     Dosage: UNK, 1X/DAY (AT BEDTIME)
  4. BECLAZONE [Concomitant]
  5. IVIG [Concomitant]
     Active Substance: HUMAN IMMUNOGLOBULIN G
     Dosage: UNK, 1X/MONTH
  6. UNSPECIFIED THYROID MEDICATIONS [Concomitant]
  7. FIRDAPSE [Suspect]
     Active Substance: AMIFAMPRIDINE
     Indication: MYASTHENIC SYNDROME
     Dosage: 15 MG, 4X/DAY (6:00AM, 10:00AM, 2:00PM, 6:00PM)
     Dates: start: 201901, end: 201908
  8. TOPAMAX [Concomitant]
     Active Substance: TOPIRAMATE
     Indication: MIGRAINE
     Dosage: 75 MG, 3X/DAY
  9. MESTINON [Concomitant]
     Active Substance: PYRIDOSTIGMINE BROMIDE
     Dosage: 60 MG, 3X/DAY

REACTIONS (8)
  - Facial pain [Unknown]
  - Peripheral coldness [Unknown]
  - Arthralgia [Recovered/Resolved]
  - Back pain [Recovered/Resolved]
  - Night sweats [Recovered/Resolved]
  - Pain in extremity [Unknown]
  - Sciatica [Recovered/Resolved]
  - Feeling cold [Unknown]

NARRATIVE: CASE EVENT DATE: 2019
